FAERS Safety Report 10510529 (Version 1)
Quarter: 2014Q4

REPORT INFORMATION
  Report Type: Spontaneous
  Country: IE (occurrence: None)
  Receive Date: 20141008
  Receipt Date: 20141008
  Transmission Date: 20150528
  Serious: Yes (Hospitalization, Other)
  Sender: FDA-Public Use
  Company Number: 2014-IE-012209

PATIENT
  Age: 4 Year
  Sex: Female

DRUGS (10)
  1. VINCRISTINE (VINCRISTINE SULFATE) [Suspect]
     Active Substance: VINCRISTINE SULFATE
     Indication: ACUTE LYMPHOCYTIC LEUKAEMIA
  2. ERWINASE (ASPARAGINASE ERWINIA CHRYSANTHEMI) INJECTION [Suspect]
     Active Substance: ASPARAGINASE ERWINIA CHRYSANTHEMI
     Indication: PHILADELPHIA CHROMOSOME POSITIVE
  3. DEXAMETHASONE (DEXAMETHASONE) [Suspect]
     Active Substance: DEXAMETHASONE
     Indication: ACUTE LYMPHOCYTIC LEUKAEMIA
  4. VINCRISTINE (VINCRISTINE SULFATE) [Suspect]
     Active Substance: VINCRISTINE SULFATE
     Indication: PHILADELPHIA CHROMOSOME POSITIVE
  5. ERWINASE (ASPARAGINASE ERWINIA CHRYSANTHEMI) INJECTION [Suspect]
     Active Substance: ASPARAGINASE ERWINIA CHRYSANTHEMI
     Indication: ACUTE LYMPHOCYTIC LEUKAEMIA
  6. DEXAMETHASONE (DEXAMETHASONE) [Suspect]
     Active Substance: DEXAMETHASONE
     Indication: PHILADELPHIA CHROMOSOME POSITIVE
  7. IMATINIB MESYLATE [Suspect]
     Active Substance: IMATINIB MESYLATE
     Indication: ACUTE LYMPHOCYTIC LEUKAEMIA
  8. IMATINIB MESYLATE [Suspect]
     Active Substance: IMATINIB MESYLATE
  9. DAUNORUBICIN [Suspect]
     Active Substance: DAUNORUBICIN
     Indication: ACUTE LYMPHOCYTIC LEUKAEMIA
  10. DAUNORUBICIN [Suspect]
     Active Substance: DAUNORUBICIN
     Indication: PHILADELPHIA CHROMOSOME POSITIVE

REACTIONS (3)
  - Pneumatosis intestinalis [None]
  - Febrile neutropenia [None]
  - Stomatitis [None]
